FAERS Safety Report 7915542-1 (Version None)
Quarter: 2011Q4

REPORT INFORMATION
  Report Type: 
  Country: None (occurrence: None)
  Receive Date: 20111115
  Receipt Date: 20110825
  Transmission Date: 20120403
  Serious: No
  Sender: FDA-Public Use
  Company Number: US-BRISTOL-MYERS SQUIBB COMPANY-16008849

PATIENT
  Age: 42 Year
  Sex: Female
  Weight: 99 kg

DRUGS (6)
  1. PERCOCET [Concomitant]
     Indication: PAIN
     Dosage: 1DF=10-325
  2. ATIVAN [Concomitant]
     Indication: ANXIETY
  3. YERVOY [Suspect]
     Indication: MALIGNANT MELANOMA
     Route: 042
     Dates: start: 20110818
  4. KLONOPIN [Concomitant]
     Indication: PANIC DISORDER
  5. KLONOPIN [Concomitant]
     Indication: AFFECTIVE DISORDER
  6. SEROQUEL [Concomitant]
     Dosage: 200MG X4DAYS,THEN 300MGX4DAYS,THEN 400MGX14DAYS,THEN 600MG QD IF TOLERATED 25MG (3 PILLS -75MG)QPM
     Route: 048
     Dates: start: 20110825

REACTIONS (1)
  - MOOD ALTERED [None]
